FAERS Safety Report 19109162 (Version 1)
Quarter: 2021Q2

REPORT INFORMATION
  Report Type: Spontaneous
  Country: US (occurrence: US)
  Receive Date: 20210409
  Receipt Date: 20210409
  Transmission Date: 20210717
  Serious: Yes (Hospitalization, Other)
  Sender: FDA-Public Use
  Company Number: US-JNJFOC-20210408596

PATIENT
  Sex: Female

DRUGS (2)
  1. XARELTO [Suspect]
     Active Substance: RIVAROXABAN
     Indication: ATRIAL FIBRILLATION
     Route: 048
  2. XARELTO [Suspect]
     Active Substance: RIVAROXABAN
     Indication: CEREBROVASCULAR ACCIDENT PROPHYLAXIS

REACTIONS (6)
  - Platelet count increased [Unknown]
  - Seizure [Unknown]
  - Loss of consciousness [Unknown]
  - Mouth haemorrhage [Unknown]
  - Fatigue [Not Recovered/Not Resolved]
  - Ulcer [Unknown]

NARRATIVE: CASE EVENT DATE: 2021
